FAERS Safety Report 23625328 (Version 4)
Quarter: 2024Q1

REPORT INFORMATION
  Report Type: Report from Study
  Country: US (occurrence: US)
  Receive Date: 20240313
  Receipt Date: 20240322
  Transmission Date: 20240410
  Serious: Yes (Hospitalization, Other)
  Sender: FDA-Public Use
  Company Number: US-ABBVIE-5674938

PATIENT
  Age: 70 Year
  Sex: Female
  Weight: 74.842 kg

DRUGS (2)
  1. SKYRIZI [Suspect]
     Active Substance: RISANKIZUMAB-RZAA
     Indication: Psoriasis
     Dosage: FORM STRENGTH: 150 MILLIGRAM, FREQUENCY TEXT: WEEK 0
     Route: 058
     Dates: start: 202311, end: 202311
  2. SKYRIZI [Suspect]
     Active Substance: RISANKIZUMAB-RZAA
     Dosage: FORM STRENGTH: 150 MILLIGRAM, WEEK 4, EVERY 12 WEEKS
     Route: 058
     Dates: start: 20231120

REACTIONS (9)
  - Fall [Recovered/Resolved]
  - Balance disorder [Recovered/Resolved]
  - Loss of consciousness [Recovered/Resolved]
  - Head injury [Recovered/Resolved]
  - Sinusitis [Recovering/Resolving]
  - Intervertebral disc compression [Not Recovered/Not Resolved]
  - Back pain [Unknown]
  - Pharyngitis streptococcal [Not Recovered/Not Resolved]
  - Peripheral swelling [Unknown]

NARRATIVE: CASE EVENT DATE: 20240301
